FAERS Safety Report 7866480-4 (Version None)
Quarter: 2011Q4

REPORT INFORMATION
  Report Type: 
  Country: None (occurrence: None)
  Receive Date: 20111028
  Receipt Date: 20110623
  Transmission Date: 20120403
  Serious: No
  Sender: FDA-Public Use
  Company Number: US-GLAXOSMITHKLINE-A0932745A

PATIENT
  Age: 64 Year
  Sex: Female

DRUGS (3)
  1. UNKNOWN NOSESPRAY [Suspect]
  2. CLARITIN [Concomitant]
  3. ADVAIR DISKUS 100/50 [Suspect]
     Indication: ASTHMA
     Dosage: 1PUFF TWICE PER DAY
     Route: 055

REACTIONS (2)
  - CANDIDIASIS [None]
  - EPISTAXIS [None]
